FAERS Safety Report 6021399-9 (Version None)
Quarter: 2008Q4

REPORT INFORMATION
  Report Type: 
  Country: None (occurrence: None)
  Receive Date: 20081229
  Receipt Date: 20081219
  Transmission Date: 20090506
  Serious: Yes (Hospitalization)
  Sender: FDA-Public Use
  Company Number: B0551350A

PATIENT
  Age: 41 Year
  Sex: Male

DRUGS (3)
  1. EPIVIR [Suspect]
     Indication: HIV INFECTION
     Dosage: 1UNIT TWICE PER DAY
     Route: 048
     Dates: start: 19960722, end: 20030926
  2. ZERIT [Suspect]
     Indication: HIV INFECTION
     Dosage: 1UNIT TWICE PER DAY
     Route: 048
     Dates: start: 19960722, end: 20030926
  3. INVIRASE [Suspect]
     Indication: HIV INFECTION
     Dosage: 3UNIT THREE TIMES PER DAY
     Route: 048
     Dates: start: 19960722, end: 20030926

REACTIONS (14)
  - ABDOMINAL PAIN [None]
  - CACHEXIA [None]
  - DYSPNOEA [None]
  - HEPATOCELLULAR INJURY [None]
  - HYPERKALAEMIA [None]
  - HYPONATRAEMIA [None]
  - LACTIC ACIDOSIS [None]
  - MACROCYTOSIS [None]
  - OEDEMA PERIPHERAL [None]
  - POLYCYTHAEMIA [None]
  - RENAL FAILURE ACUTE [None]
  - THROMBOCYTOPENIA [None]
  - VOMITING [None]
  - WEIGHT DECREASED [None]
